FAERS Safety Report 12187546 (Version 1)
Quarter: 2016Q1

REPORT INFORMATION
  Report Type: Spontaneous
  Country: US (occurrence: None)
  Receive Date: 20160316
  Receipt Date: 20160316
  Transmission Date: 20160526
  Serious: No
  Sender: FDA-Public Use
  Company Number: None

PATIENT
  Age: 54 Year
  Sex: Female

DRUGS (9)
  1. SULFALAZINE [Concomitant]
  2. METHOTREXATE [Concomitant]
     Active Substance: METHOTREXATE
  3. CYMBALTA [Concomitant]
     Active Substance: DULOXETINE HYDROCHLORIDE
  4. FOLBEE [Concomitant]
     Active Substance: CYANOCOBALAMIN\FOLIC ACID\PYRIDOXINE HYDROCHLORIDE
  5. XELJANZ [Suspect]
     Active Substance: TOFACITINIB CITRATE
     Indication: RHEUMATOID ARTHRITIS
     Dosage: TAKEN ONE TABLET BID ORAL
     Route: 048
  6. LYRICA [Concomitant]
     Active Substance: PREGABALIN
  7. XELJANZ [Concomitant]
     Active Substance: TOFACITINIB CITRATE
  8. ARAVA [Concomitant]
     Active Substance: LEFLUNOMIDE
  9. VITAMIN D [Concomitant]
     Active Substance: CHOLECALCIFEROL

REACTIONS (1)
  - Pain [None]

NARRATIVE: CASE EVENT DATE: 20160315
